FAERS Safety Report 17429382 (Version 3)
Quarter: 2020Q3

REPORT INFORMATION
  Report Type: Report from Study
  Country: GB (occurrence: GB)
  Receive Date: 20200218
  Receipt Date: 20200819
  Transmission Date: 20201102
  Serious: Yes (Hospitalization)
  Sender: FDA-Public Use
  Company Number: GB-MYLANLABS-2020M1016362

PATIENT
  Age: 84 Year
  Sex: Male

DRUGS (4)
  1. OMEPRAZOLE. [Suspect]
     Active Substance: OMEPRAZOLE
     Indication: PRODUCT USED FOR UNKNOWN INDICATION
     Dosage: UNK
     Route: 065
  2. SANDOSTATIN LAR DEPOT [Suspect]
     Active Substance: OCTREOTIDE ACETATE
     Dosage: 30 MG, 4 TIMES A DAY
     Route: 030
     Dates: start: 201904
  3. SANDOSTATIN LAR DEPOT [Suspect]
     Active Substance: OCTREOTIDE ACETATE
     Dosage: 30 MILLIGRAM, MONTHLY30 MG, QMO
     Route: 030
     Dates: start: 20190621
  4. SANDOSTATIN LAR DEPOT [Suspect]
     Active Substance: OCTREOTIDE ACETATE
     Indication: NEUROENDOCRINE TUMOUR
     Dosage: 30 MG, QMO
     Route: 030
     Dates: start: 201904

REACTIONS (5)
  - Pain [Unknown]
  - Syncope [Recovered/Resolved]
  - Diarrhoea [Recovering/Resolving]
  - Head injury [Recovered/Resolved]
  - Face injury [Unknown]

NARRATIVE: CASE EVENT DATE: 20191111
